FAERS Safety Report 17576635 (Version 2)
Quarter: 2020Q2

REPORT INFORMATION
  Report Type: Spontaneous
  Country: GB (occurrence: GB)
  Receive Date: 20200324
  Receipt Date: 20200605
  Transmission Date: 20200713
  Serious: Yes (Hospitalization, Other)
  Sender: FDA-Public Use
  Company Number: GB-ACCORD-176407

PATIENT
  Age: 26 Year
  Sex: Female

DRUGS (12)
  1. POSACONAZOLE [Suspect]
     Active Substance: POSACONAZOLE
     Indication: PULMONARY MYCOSIS
     Dosage: UNK
     Route: 048
  2. POSACONAZOLE [Suspect]
     Active Substance: POSACONAZOLE
     Indication: ASPERGILLUS INFECTION
     Dosage: UNK
     Route: 048
     Dates: start: 201405, end: 201607
  3. CASPOFUNGIN [Suspect]
     Active Substance: CASPOFUNGIN
     Indication: SCEDOSPORIUM INFECTION
     Dosage: UNK
  4. CASPOFUNGIN [Suspect]
     Active Substance: CASPOFUNGIN
     Indication: PULMONARY MYCOSIS
     Dosage: UNK
  5. POSACONAZOLE [Suspect]
     Active Substance: POSACONAZOLE
     Indication: SCEDOSPORIUM INFECTION
     Dosage: UNK
  6. ITRACONAZOLE. [Suspect]
     Active Substance: ITRACONAZOLE
     Indication: ASPERGILLUS INFECTION
  7. ITRACONAZOLE. [Suspect]
     Active Substance: ITRACONAZOLE
     Indication: PULMONARY MYCOSIS
     Dosage: UNK
  8. VORICONAZOLE. [Suspect]
     Active Substance: VORICONAZOLE
     Indication: ASPERGILLUS INFECTION
     Dosage: UNK
     Dates: start: 201104, end: 201306
  9. TERBINAFINE/TERBINAFINE HYDROCHLORIDE [Suspect]
     Active Substance: TERBINAFINE HYDROCHLORIDE
     Indication: ASPERGILLUS INFECTION
     Dosage: UNK
     Dates: start: 201511
  10. TERBINAFINE/TERBINAFINE HYDROCHLORIDE [Suspect]
     Active Substance: TERBINAFINE HYDROCHLORIDE
     Indication: PULMONARY MYCOSIS
     Dosage: UNK
     Dates: start: 201511
  11. VORICONAZOLE. [Suspect]
     Active Substance: VORICONAZOLE
     Indication: PULMONARY MYCOSIS
     Dosage: UNK
     Dates: start: 201104, end: 201306
  12. CASPOFUNGIN [Suspect]
     Active Substance: CASPOFUNGIN
     Indication: ASPERGILLUS INFECTION
     Dosage: UNK

REACTIONS (3)
  - Aspergillus infection [Unknown]
  - Drug ineffective [Unknown]
  - Scedosporium infection [Unknown]
